FAERS Safety Report 25770024 (Version 1)
Quarter: 2025Q3

REPORT INFORMATION
  Report Type: Report from Study
  Country: EG (occurrence: EG)
  Receive Date: 20250907
  Receipt Date: 20250907
  Transmission Date: 20251021
  Serious: Yes (Disabling, Other)
  Sender: NOVARTIS
  Company Number: EG-002147023-NVSC2025EG138373

PATIENT
  Age: 20 Year
  Sex: Female
  Weight: 50 kg

DRUGS (4)
  1. COSENTYX [Suspect]
     Active Substance: SECUKINUMAB
     Indication: Psoriatic arthropathy
     Dosage: 150 MG, QMO (OFF LABEL DOSE)
     Route: 058
     Dates: start: 2019
  2. COSENTYX [Suspect]
     Active Substance: SECUKINUMAB
     Route: 058
  3. COSENTYX [Suspect]
     Active Substance: SECUKINUMAB
     Dosage: 150 MG, QMO
     Route: 058
  4. METHOTREXATE [Concomitant]
     Active Substance: METHOTREXATE
     Indication: Psoriatic arthropathy
     Dosage: UNK, QW (SOLUTION FOR INJECTION)
     Route: 058
     Dates: start: 2017

REACTIONS (7)
  - Cartilage injury [Unknown]
  - Hypothyroidism [Recovered/Resolved]
  - Joint effusion [Recovered/Resolved]
  - Joint effusion [Recovered/Resolved]
  - White blood cell count decreased [Recovered/Resolved]
  - Muscular weakness [Recovered/Resolved]
  - Off label use [Unknown]

NARRATIVE: CASE EVENT DATE: 20211001
